FAERS Safety Report 10243838 (Version 3)
Quarter: 2014Q3

REPORT INFORMATION
  Report Type: Spontaneous
  Country: BR (occurrence: BR)
  Receive Date: 20140618
  Receipt Date: 20140916
  Transmission Date: 20150326
  Serious: Yes (Hospitalization, Other)
  Sender: FDA-Public Use
  Company Number: BR-PFIZER INC-2014165885

PATIENT
  Sex: Female
  Weight: 71 kg

DRUGS (15)
  1. PANTOPRAZOLE [Suspect]
     Active Substance: PANTOPRAZOLE SODIUM
     Indication: GASTROINTESTINAL DISORDER
     Dosage: 20 MG, DAILY
     Route: 048
     Dates: start: 201404
  2. ACETYLSALICYLIC ACID [Suspect]
     Active Substance: ASPIRIN
     Indication: ANTICOAGULANT THERAPY
     Dosage: 1 DF(25 MG), DAILY
     Route: 048
     Dates: start: 1999
  3. APRESOLIN [Suspect]
     Active Substance: HYDRALAZINE HYDROCHLORIDE
     Indication: HYPERTENSION
     Dosage: 3 DF(5 MG), 1X/DAY
     Route: 048
     Dates: start: 201404
  4. SIMVASTATIN. [Suspect]
     Active Substance: SIMVASTATIN
     Indication: BLOOD CHOLESTEROL
     Dosage: 1 DF, QD (40 MG)
     Route: 048
     Dates: start: 201404
  5. SPIRONOLACTONE. [Suspect]
     Active Substance: SPIRONOLACTONE
     Dosage: 1 DF, 1X/DAY (25 MG)
     Route: 048
     Dates: start: 201404
  6. METFORMIN HCL [Suspect]
     Active Substance: METFORMIN HYDROCHLORIDE
     Indication: DIABETES MELLITUS
     Dosage: 2 DF, 1X/DAY (500 MG)
     Route: 048
     Dates: start: 1999
  7. CARVEDILOL. [Suspect]
     Active Substance: CARVEDILOL
     Dosage: 2 DF, DAILY (25 MG)
     Route: 048
     Dates: start: 201404
  8. EXFORGE HCT [Suspect]
     Active Substance: AMLODIPINE BESYLATE\HYDROCHLOROTHIAZIDE\VALSARTAN
     Indication: HYPERTENSION
     Dosage: 2 TAB (160/5/12.5 MG), QD
     Route: 048
     Dates: start: 201404, end: 201408
  9. ADDERA D3 [Suspect]
     Active Substance: CHOLECALCIFEROL
     Indication: VITAMIN D DECREASED
     Dosage: 12 GTT, QD (10 MG)
     Route: 048
     Dates: start: 201404
  10. RIVOTRIL [Suspect]
     Active Substance: CLONAZEPAM
     Indication: SLEEP DISORDER
     Dosage: 3 GTT, QD (2.5)
     Route: 048
  11. DAFLON [Suspect]
     Active Substance: DIOSMIN\HESPERIDIN
     Indication: OSTEOARTHRITIS
     Dosage: 2 DF, QD (500 MG)
     Route: 048
     Dates: start: 201404
  12. FLUOXETINE HCL [Suspect]
     Active Substance: FLUOXETINE HYDROCHLORIDE
     Indication: FEELING ABNORMAL
     Dosage: 20 GTT, DAILY
     Route: 048
     Dates: start: 201406
  13. MONOPRIL [Suspect]
     Active Substance: FOSINOPRIL SODIUM
     Dosage: UNK
  14. TRYPTANOL [Suspect]
     Active Substance: AMITRIPTYLINE
     Indication: CONVULSION PROPHYLAXIS
     Dosage: 1 DF, QD (25 MG)
     Route: 048
     Dates: start: 1999
  15. HYDRALAZINE [Suspect]
     Active Substance: HYDRALAZINE HYDROCHLORIDE
     Dosage: UNK
     Dates: start: 201404

REACTIONS (12)
  - Somnolence [Recovering/Resolving]
  - Angina pectoris [Unknown]
  - Decreased appetite [Recovering/Resolving]
  - Weight decreased [Recovering/Resolving]
  - Ageusia [Recovering/Resolving]
  - Back pain [Unknown]
  - Blood pressure decreased [Recovering/Resolving]
  - Infarction [Unknown]
  - Haematocrit decreased [Unknown]
  - Glycosylated haemoglobin increased [Unknown]
  - Red blood cell count decreased [Unknown]
  - Haemoglobin decreased [Unknown]

NARRATIVE: CASE EVENT DATE: 201404
